FAERS Safety Report 9153982 (Version 2)
Quarter: 2013Q3

REPORT INFORMATION
  Report Type: Report from Study
  Country: TW (occurrence: TW)
  Receive Date: 20130311
  Receipt Date: 20130924
  Transmission Date: 20140515
  Serious: Yes (Hospitalization)
  Sender: FDA-Public Use
  Company Number: TW-BRISTOL-MYERS SQUIBB COMPANY-17431677

PATIENT
  Age: 66 Year
  Sex: Female
  Weight: 46.2 kg

DRUGS (7)
  1. CARBOPLATIN [Suspect]
     Indication: OVARIAN CANCER
     Dosage: LAST DOSE ON 3FEB12,20APR12
     Route: 042
     Dates: start: 20111219
  2. PACLITAXEL [Suspect]
     Indication: OVARIAN CANCER
     Dosage: LAST DOSE ON 3FEB12,20APR12?DOSE VALUE:250.25 MG
     Route: 042
     Dates: start: 20111219
  3. BEVACIZUMAB [Suspect]
     Indication: OVARIAN CANCER
     Dosage: LAST DOSE ON 3FEB12,20APR12
     Route: 042
     Dates: start: 20120113
  4. CLONAZEPAM [Concomitant]
     Dates: start: 20120209, end: 20120308
  5. SIMETHICONE [Concomitant]
     Dates: start: 20111212
  6. SENNOSIDE [Concomitant]
     Dates: start: 20111210
  7. METOCLOPRAMIDE [Concomitant]
     Dates: start: 20111216, end: 20120206

REACTIONS (1)
  - Bruxism [Recovered/Resolved]
